FAERS Safety Report 10142604 (Version 1)
Quarter: 2014Q2

REPORT INFORMATION
  Report Type: Spontaneous
  Country: US (occurrence: None)
  Receive Date: 20140428
  Receipt Date: 20140428
  Transmission Date: 20141212
  Serious: Yes (Other)
  Sender: FDA-Public Use
  Company Number: None

PATIENT
  Age: 9 Year
  Sex: Male

DRUGS (1)
  1. MONTELUKAST [Suspect]
     Indication: SEASONAL ALLERGY
     Dosage: 1, PO, QD
     Route: 048
     Dates: start: 20140219, end: 20140225

REACTIONS (4)
  - Unresponsive to stimuli [None]
  - Muscle twitching [None]
  - Seizure like phenomena [None]
  - Muscle twitching [None]
